FAERS Safety Report 19733680 (Version 1)
Quarter: 2021Q3

REPORT INFORMATION
  Report Type: Spontaneous
  Country: IN (occurrence: IN)
  Receive Date: 20210824
  Receipt Date: 20210824
  Transmission Date: 20211014
  Serious: Yes (Hospitalization)
  Sender: FDA-Public Use
  Company Number: IN-SUN PHARMACEUTICAL INDUSTRIES LTD-2021R1-308759

PATIENT
  Age: 22 Year
  Sex: Female
  Weight: 62 kg

DRUGS (3)
  1. CALCICARE [MINERALS\VITAMINS] [Suspect]
     Active Substance: MINERALS\VITAMINS
     Indication: PRURIGO
     Dosage: 1 TABLET, BID
     Route: 065
  2. MYFEZ [Suspect]
     Active Substance: DEFLAZACORT
     Indication: PRURIGO
     Dosage: 30 MILLIGRAM, DAILY
     Route: 065
  3. DAZIT [Suspect]
     Active Substance: DESLORATADINE
     Indication: PRURIGO
     Dosage: 5 MILLIGRAM, DAILY
     Route: 065

REACTIONS (1)
  - Condition aggravated [Unknown]
